FAERS Safety Report 4540977-7 (Version None)
Quarter: 2004Q4

REPORT INFORMATION
  Report Type: 
  Country: None (occurrence: None)
  Receive Date: 20041228
  Receipt Date: 20041220
  Transmission Date: 20050328
  Serious: Yes (Life-Threatening)
  Sender: FDA-Public Use
  Company Number: 20041200515

PATIENT
  Age: 63 Year
  Sex: Male
  Weight: 110 kg

DRUGS (9)
  1. BREVIBLOC (ESMOLOL HYDROCHLORIDE) (BAXTER, 2.5 G/10 ML) [Suspect]
     Indication: ARRHYTHMIA SUPRAVENTRICULAR
     Dosage: 10 ML BOLUS IV
     Route: 042
     Dates: start: 20041209, end: 20041209
  2. BREVIBLOC (ESMOLOL HYDROCHLORIDE) (BAXTER, 2.5 G/10 ML) [Suspect]
     Indication: ATRIAL TACHYCARDIA
     Dosage: 10 ML BOLUS IV
     Route: 042
     Dates: start: 20041209, end: 20041209
  3. PANTAZOL (PANTOPRAZOLE) [Concomitant]
  4. DIGITOXIN TAB [Concomitant]
  5. METOPROLOL SUCCINATE [Concomitant]
  6. DELIX 10 (RAMIPRIL) [Concomitant]
  7. CLEXANE (ENOXAPARIN-NA) [Concomitant]
  8. LASIX (FUREOSEMIDE) [Concomitant]
  9. AUGMENTIN (AMIXICILLIN AND CLAVULANIC ACID) [Concomitant]

REACTIONS (6)
  - ANURIA [None]
  - CARDIAC ARREST [None]
  - HAEMODIALYSIS [None]
  - MEDICATION ERROR [None]
  - OVERDOSE [None]
  - OXYGEN SATURATION DECREASED [None]
